FAERS Safety Report 21640854 (Version 4)
Quarter: 2024Q2

REPORT INFORMATION
  Report Type: Report from Study
  Country: GR (occurrence: GR)
  Receive Date: 20221125
  Receipt Date: 20240519
  Transmission Date: 20240716
  Serious: Yes (Other)
  Sender: FDA-Public Use
  Company Number: GR-ABBVIE-4208192

PATIENT
  Age: 76 Year
  Sex: Male
  Weight: 67 kg

DRUGS (17)
  1. VENETOCLAX [Suspect]
     Active Substance: VENETOCLAX
     Indication: Acute myeloid leukaemia
     Route: 048
     Dates: start: 20220905, end: 20220923
  2. ENTECAVIR [Concomitant]
     Active Substance: ENTECAVIR
     Indication: Antiviral prophylaxis
     Dosage: 0.5 MILLIGRAM
     Route: 048
     Dates: start: 20220923, end: 20221017
  3. SIMVASTATIN [Concomitant]
     Active Substance: SIMVASTATIN
     Indication: Dyslipidaemia
     Route: 048
     Dates: start: 2011, end: 20230115
  4. MANIDIPINE [Concomitant]
     Active Substance: MANIDIPINE
     Indication: Atrial fibrillation
     Route: 048
     Dates: start: 2021, end: 20230115
  5. VALACYCLOVIR HYDROCHLORIDE [Concomitant]
     Active Substance: VALACYCLOVIR HYDROCHLORIDE
     Indication: Antiviral prophylaxis
     Route: 048
     Dates: start: 20220923, end: 20220930
  6. CALCIUM [Concomitant]
     Active Substance: CALCIUM
     Indication: Prophylaxis
     Route: 048
     Dates: start: 20220923, end: 20220930
  7. FEBUXOSTAT EG [Concomitant]
     Indication: Hyperuricaemia
     Route: 048
     Dates: start: 20220923, end: 20221017
  8. PIPERACILLIN AND TAZOBACTAM [Concomitant]
     Active Substance: PIPERACILLIN SODIUM\TAZOBACTAM SODIUM
     Indication: Antiviral prophylaxis
     Route: 048
     Dates: start: 20220923, end: 20220930
  9. PANTOPRAZOLE [Concomitant]
     Active Substance: PANTOPRAZOLE
     Indication: Gastrointestinal disorder prophylaxis
     Route: 048
     Dates: end: 20230115
  10. TRANEXAMIC ACIDE [Concomitant]
     Indication: Haemorrhage prophylaxis
     Dosage: TIME INTERVAL: 0.33333333 DAYS
     Route: 048
     Dates: start: 20220923, end: 20221010
  11. METOPROLOL [Concomitant]
     Active Substance: METOPROLOL
     Indication: Hypertension
     Route: 048
     Dates: start: 2001, end: 20230115
  12. VALTREX [Concomitant]
     Active Substance: VALACYCLOVIR HYDROCHLORIDE
     Indication: Prophylaxis
     Route: 048
     Dates: start: 20220923, end: 20230115
  13. PREGABALIN EG [Concomitant]
     Indication: Anxiety
     Route: 048
     Dates: start: 20220923, end: 20220930
  14. TRANSAMIN [Concomitant]
     Active Substance: TRANEXAMIC ACID
     Indication: Haemorrhage prophylaxis
     Dosage: TIME INTERVAL: 0.33333333 DAYS
     Route: 048
     Dates: start: 20220905, end: 20230115
  15. EZETIMIBE [Concomitant]
     Active Substance: EZETIMIBE
     Indication: Dyslipidaemia
     Route: 048
     Dates: start: 2011, end: 20230115
  16. FEBUXOSTAT [Concomitant]
     Active Substance: FEBUXOSTAT
     Indication: Hyperuricaemia
     Route: 048
     Dates: start: 202012, end: 20230115
  17. GLUCOPHAGE [Concomitant]
     Active Substance: METFORMIN HYDROCHLORIDE
     Indication: Type 2 diabetes mellitus
     Route: 048
     Dates: start: 2011, end: 20230115

REACTIONS (3)
  - Platelet transfusion [Unknown]
  - Febrile neutropenia [Recovered/Resolved]
  - Pyrexia [Unknown]

NARRATIVE: CASE EVENT DATE: 20220923
